FAERS Safety Report 8749619 (Version 3)
Quarter: 2012Q4

REPORT INFORMATION
  Report Type: Spontaneous
  Country: US (occurrence: None)
  Receive Date: 20120808
  Receipt Date: 20121001
  Transmission Date: 20130627
  Serious: Yes (Death)
  Sender: FDA-Public Use
  Company Number: AMAG201203077

PATIENT
  Age: 73 Year
  Sex: Male
  Weight: 78 kg

DRUGS (11)
  1. FERAHEME [Suspect]
     Indication: IRON DEFICIENCY ANAEMIA
     Dosage: 510 MG, SINGLE, IV PUSH
     Route: 042
     Dates: start: 20120727, end: 20120727
  2. FERAHEME [Suspect]
     Indication: CHRONIC KIDNEY DISEASE
     Dosage: 510 MG, SINGLE, IV PUSH
     Route: 042
     Dates: start: 20120727, end: 20120727
  3. FERAHEME [Suspect]
     Indication: LYMPHOMA
     Dosage: 510 MG, SINGLE, IV PUSH
     Route: 042
     Dates: start: 20120727, end: 20120727
  4. PRILOSEC [Concomitant]
  5. ALLOPURINOL [Concomitant]
  6. ZOFRAN (ONDANSETRON HYDROCHLORIDE) [Concomitant]
  7. COMPAZINE [Concomitant]
  8. CYTOXAN [Concomitant]
  9. ONCOVIN [Concomitant]
  10. RITUXAN [Concomitant]
  11. ADRIAMYCIN [Concomitant]

REACTIONS (12)
  - Acute myocardial infarction [None]
  - Unresponsive to stimuli [None]
  - Pulseless electrical activity [None]
  - Burning sensation [None]
  - Erythema [None]
  - Hyperhidrosis [None]
  - Headache [None]
  - Flushing [None]
  - Cardio-respiratory arrest [None]
  - Blood pressure systolic increased [None]
  - Sinus bradycardia [None]
  - Ventricular fibrillation [None]
